FAERS Safety Report 14122655 (Version 2)
Quarter: 2017Q4

REPORT INFORMATION
  Report Type: Report from Study
  Country: None (occurrence: US)
  Receive Date: 20171024
  Receipt Date: 20171228
  Transmission Date: 20180321
  Serious: Yes (Death, Other)
  Sender: FDA-Public Use
  Company Number: US-ABBVIE-17K-163-2140095-00

PATIENT
  Age: 76 Year
  Sex: Male

DRUGS (1)
  1. HUMIRA [Suspect]
     Active Substance: ADALIMUMAB
     Indication: PSORIATIC ARTHROPATHY
     Route: 058
     Dates: start: 201608

REACTIONS (4)
  - Fall [Fatal]
  - Traumatic intracranial haemorrhage [Fatal]
  - Death [Fatal]
  - Head injury [Fatal]

NARRATIVE: CASE EVENT DATE: 201710
